FAERS Safety Report 12118203 (Version 2)
Quarter: 2016Q3

REPORT INFORMATION
  Report Type: Spontaneous
  Country: US (occurrence: US)
  Receive Date: 20160226
  Receipt Date: 20160822
  Transmission Date: 20161109
  Serious: Yes (Hospitalization, Other)
  Sender: FDA-Public Use
  Company Number: US-BRISTOL-MYERS SQUIBB COMPANY-BMS-2016-011885

PATIENT
  Sex: Female

DRUGS (2)
  1. SPRYCEL [Suspect]
     Active Substance: DASATINIB
     Indication: NEOPLASM MALIGNANT
     Dosage: 40 MG, 6 DAYS/WK
     Route: 048
     Dates: start: 20150911
  2. SPRYCEL [Suspect]
     Active Substance: DASATINIB
     Dosage: 20 MG, 1 DAY/WEEK
     Route: 048

REACTIONS (2)
  - Off label use [Unknown]
  - Agranulocytosis [Unknown]
